FAERS Safety Report 8833621 (Version 1)
Quarter: 2012Q4

REPORT INFORMATION
  Report Type: Report from Study
  Country: CA (occurrence: CA)
  Receive Date: 20121010
  Receipt Date: 20121010
  Transmission Date: 20130627
  Serious: Yes (Hospitalization)
  Sender: FDA-Public Use
  Company Number: CA-JNJFOC-20121001268

PATIENT
  Age: 36 Year
  Sex: Female
  Weight: 93 kg

DRUGS (3)
  1. REMICADE [Suspect]
     Indication: COLITIS ULCERATIVE
     Route: 042
     Dates: start: 20111216, end: 20120911
  2. CITALOPRAM [Concomitant]
     Route: 065
  3. PREDNISONE [Concomitant]
     Route: 048

REACTIONS (2)
  - Colectomy [Unknown]
  - Ileostomy [Unknown]
